FAERS Safety Report 7703762-0 (Version None)
Quarter: 2011Q3

REPORT INFORMATION
  Report Type: 
  Country: None (occurrence: None)
  Receive Date: 20110823
  Receipt Date: 20110811
  Transmission Date: 20111222
  Serious: Yes (Other)
  Sender: FDA-Public Use
  Company Number: AU-JNJFOC-20110705281

PATIENT
  Sex: Female
  Weight: 65 kg

DRUGS (3)
  1. IMURAN [Concomitant]
  2. REMICADE [Suspect]
     Indication: CROHN'S DISEASE
     Route: 065
     Dates: start: 20101126
  3. REMICADE [Suspect]
     Route: 065
     Dates: start: 20110624

REACTIONS (3)
  - MATERNAL EXPOSURE DURING PREGNANCY [None]
  - HYPOTHYROIDISM [None]
  - BASEDOW'S DISEASE [None]
